FAERS Safety Report 7465921-4 (Version None)
Quarter: 2011Q2

REPORT INFORMATION
  Report Type: 
  Country: None (occurrence: None)
  Receive Date: 20110509
  Receipt Date: 20100415
  Transmission Date: 20111010
  Serious: No
  Sender: FDA-Public Use
  Company Number: US-ALEXION-A201000429

PATIENT
  Sex: Male

DRUGS (4)
  1. SOLIRIS [Suspect]
     Indication: PAROXYSMAL NOCTURNAL HAEMOGLOBINURIA
     Route: 042
  2. METHADONE HCL [Concomitant]
     Dosage: 10 MG, QID
     Route: 048
     Dates: start: 20100408
  3. SOLIRIS [Suspect]
     Dosage: 900 MG, UNK
     Route: 042
  4. MORPHINE [Concomitant]
     Dosage: 10-12 TIMES DAILY
     Route: 048
     Dates: end: 20100408

REACTIONS (1)
  - NAUSEA [None]
